FAERS Safety Report 25043035 (Version 1)
Quarter: 2025Q1

REPORT INFORMATION
  Report Type: Spontaneous
  Country: US (occurrence: US)
  Receive Date: 20250305
  Receipt Date: 20250305
  Transmission Date: 20250408
  Serious: Yes (Other)
  Sender: HALOZYME
  Company Number: US-HALOZYME THERAPEUTICS, INC.-2025-US-TX -01842

PATIENT

DRUGS (1)
  1. XYOSTED [Suspect]
     Active Substance: TESTOSTERONE ENANTHATE
     Indication: Product used for unknown indication
     Route: 058
     Dates: start: 202408

REACTIONS (1)
  - Injection site infection [None]
